FAERS Safety Report 19051463 (Version 1)
Quarter: 2021Q1

REPORT INFORMATION
  Report Type: Spontaneous
  Country: US (occurrence: US)
  Receive Date: 20210324
  Receipt Date: 20210324
  Transmission Date: 20210420
  Serious: Yes (Hospitalization)
  Sender: FDA-Public Use
  Company Number: None

PATIENT
  Age: 71 Year
  Sex: Male

DRUGS (9)
  1. XELJANZ XR [Suspect]
     Active Substance: TOFACITINIB CITRATE
     Indication: RHEUMATOID ARTHRITIS
     Route: 048
     Dates: start: 20200124
  2. OXYCODONE [Concomitant]
     Active Substance: OXYCODONE
  3. GABAPENTIN. [Concomitant]
     Active Substance: GABAPENTIN
  4. COVID?19 VAX [Concomitant]
  5. VALACYCLOVIR [Concomitant]
     Active Substance: VALACYCLOVIR HYDROCHLORIDE
  6. DILTIAZEM ER [Concomitant]
     Active Substance: DILTIAZEM
  7. CARB/LEVO [Concomitant]
     Active Substance: CARBIDOPA\LEVODOPA
  8. COVID?19 VACCINE NOS. [Suspect]
     Active Substance: COVID-19 VACCINE NOS
  9. OLM MED/HCTZ [Concomitant]

REACTIONS (1)
  - Herpes zoster [None]
